FAERS Safety Report 9262223 (Version 2)
Quarter: 2013Q2

REPORT INFORMATION
  Report Type: Spontaneous
  Country: US (occurrence: US)
  Receive Date: 20130430
  Receipt Date: 20130521
  Transmission Date: 20140414
  Serious: Yes (Hospitalization)
  Sender: FDA-Public Use
  Company Number: US-BIOGENIDEC-2013BI037285

PATIENT
  Sex: Female

DRUGS (2)
  1. TYSABRI [Suspect]
     Indication: MULTIPLE SCLEROSIS
     Route: 042
     Dates: start: 20100902, end: 201212
  2. STEROIDS (NOS) [Concomitant]

REACTIONS (5)
  - Uhthoff^s phenomenon [Unknown]
  - Drug specific antibody present [Unknown]
  - Multiple sclerosis relapse [Unknown]
  - Viral infection [Unknown]
  - Pain [Unknown]
